FAERS Safety Report 9137298 (Version 1)
Quarter: 2013Q1

REPORT INFORMATION
  Report Type: Spontaneous
  Country: US (occurrence: US)
  Receive Date: 20130304
  Receipt Date: 20130304
  Transmission Date: 20140127
  Serious: No
  Sender: FDA-Public Use
  Company Number: US-ABBOTT-12P-163-0931769-00

PATIENT
  Sex: Male

DRUGS (2)
  1. ANDROGEL 1% [Suspect]
     Indication: BLOOD TESTOSTERONE DECREASED
     Dosage: 2.5 GRAMS (WHEN TAKES 5 GRAM PACKET) AND 7.5 GRAMS (ALONE WITHOUT PACKET)
     Route: 061
  2. ANDROGEL 1% [Suspect]
     Dosage: PACKETS
     Route: 061

REACTIONS (3)
  - Blood testosterone decreased [Not Recovered/Not Resolved]
  - Oedema peripheral [Not Recovered/Not Resolved]
  - Local swelling [Not Recovered/Not Resolved]
